FAERS Safety Report 7828154-5 (Version None)
Quarter: 2011Q4

REPORT INFORMATION
  Report Type: 
  Country: None (occurrence: None)
  Receive Date: 20111020
  Receipt Date: 20111004
  Transmission Date: 20120403
  Serious: No
  Sender: FDA-Public Use
  Company Number: US-B.I. PHARMACEUTICALS,INC./RIDGEFIELD-2011-BP-22355BP

PATIENT
  Sex: Male
  Weight: 95.25 kg

DRUGS (6)
  1. SPIRIVA [Suspect]
     Indication: CHRONIC OBSTRUCTIVE PULMONARY DISEASE
     Dosage: 18 MCG
     Route: 055
  2. SERTRALINE HYDROCHLORIDE [Concomitant]
  3. PROAIR HFA [Concomitant]
  4. LITHIUM CITRATE [Concomitant]
  5. ADVAIR DISKUS 100/50 [Concomitant]
  6. BUSPIRONE HCL [Concomitant]

REACTIONS (1)
  - PENIS DISORDER [None]
